FAERS Safety Report 5535503-X (Version None)
Quarter: 2007Q4

REPORT INFORMATION
  Report Type: 
  Country: None (occurrence: None)
  Receive Date: 20071206
  Receipt Date: 20071126
  Transmission Date: 20080405
  Serious: Yes (Hospitalization)
  Sender: FDA-Public Use
  Company Number: CZ-ROCHE-533326

PATIENT
  Age: 49 Year
  Sex: Female
  Weight: 75 kg

DRUGS (5)
  1. RIBAVIRIN [Suspect]
     Dosage: DOSING FREQUENCY REPORTED AS: 2-0-3/D
     Route: 048
     Dates: start: 20070421
  2. PEG-INTERFERON ALFA 2A (RO 25-8310) [Suspect]
     Route: 058
     Dates: start: 20070421
  3. EGILOK [Concomitant]
     Route: 065
     Dates: start: 20030101
  4. 1 UNSPECIFIED DRUG [Concomitant]
     Dosage: DRUG REPORTED AS ^AUREUS^
     Dates: start: 20030101
  5. REMOOD [Concomitant]
     Dates: start: 20071003

REACTIONS (1)
  - BILIARY COLIC [None]
